FAERS Safety Report 18235472 (Version 1)
Quarter: 2020Q3

REPORT INFORMATION
  Report Type: Spontaneous
  Country: US (occurrence: US)
  Receive Date: 20200905
  Receipt Date: 20200905
  Transmission Date: 20201103
  Serious: No
  Sender: FDA-Public Use
  Company Number: US-ACCORD-162817

PATIENT
  Sex: Female

DRUGS (1)
  1. NALTREXONE ACCORD [Suspect]
     Active Substance: NALTREXONE HYDROCHLORIDE
     Indication: WEIGHT DECREASED

REACTIONS (3)
  - Dizziness [Unknown]
  - Decreased appetite [Unknown]
  - Off label use [Unknown]
